FAERS Safety Report 11832119 (Version 2)
Quarter: 2015Q4

REPORT INFORMATION
  Report Type: Report from Study
  Country: HN (occurrence: HN)
  Receive Date: 20151214
  Receipt Date: 20151216
  Transmission Date: 20160305
  Serious: Yes (Death)
  Sender: FDA-Public Use
  Company Number: PHHY2015HN163679

PATIENT
  Age: 55 Year
  Sex: Female
  Weight: 62.7 kg

DRUGS (2)
  1. GLIVEC [Suspect]
     Active Substance: IMATINIB MESYLATE
     Dosage: 400 MG, QD
     Route: 048
  2. GLIVEC [Suspect]
     Active Substance: IMATINIB MESYLATE
     Indication: CHRONIC MYELOID LEUKAEMIA
     Dosage: 300 MG, QD
     Route: 048
     Dates: start: 20040610

REACTIONS (7)
  - Dyspnoea [Unknown]
  - Feeling abnormal [Unknown]
  - Fatigue [Unknown]
  - Leukocytosis [Unknown]
  - Therapeutic response decreased [Unknown]
  - Death [Fatal]
  - Pyrexia [Unknown]

NARRATIVE: CASE EVENT DATE: 20150916
